FAERS Safety Report 19223880 (Version 1)
Quarter: 2021Q2

REPORT INFORMATION
  Report Type: Report from Study
  Country: US (occurrence: US)
  Receive Date: 20210505
  Receipt Date: 20210505
  Transmission Date: 20210717
  Serious: No
  Sender: FDA-Public Use
  Company Number: US-LUNDBECK-DKLU3031405

PATIENT
  Age: 63 Year
  Sex: Female

DRUGS (1)
  1. VYEPTI [Suspect]
     Active Substance: EPTINEZUMAB-JJMR
     Indication: MIGRAINE
     Route: 041
     Dates: start: 20210405

REACTIONS (6)
  - Throat irritation [Unknown]
  - Nasal congestion [Unknown]
  - Dizziness [Unknown]
  - Migraine [Unknown]
  - Rhinorrhoea [Unknown]
  - Disorientation [Unknown]

NARRATIVE: CASE EVENT DATE: 20210405
